FAERS Safety Report 4469794-3 (Version None)
Quarter: 2004Q4

REPORT INFORMATION
  Report Type: 
  Country: None (occurrence: None)
  Receive Date: 20041008
  Receipt Date: 20040928
  Transmission Date: 20050328
  Serious: Yes (Other)
  Sender: FDA-Public Use
  Company Number: FR-ROCHE-382257

PATIENT
  Age: 60 Year
  Sex: Female

DRUGS (2)
  1. LARIAM [Suspect]
     Indication: MALARIA PROPHYLAXIS
     Route: 048
  2. LARIAM [Suspect]
     Route: 048

REACTIONS (1)
  - REFLEX SYMPATHETIC DYSTROPHY [None]
